FAERS Safety Report 10129347 (Version 1)
Quarter: 2014Q2

REPORT INFORMATION
  Report Type: Spontaneous
  Country: US (occurrence: US)
  Receive Date: 20140428
  Receipt Date: 20140428
  Transmission Date: 20141212
  Serious: Yes (Other)
  Sender: FDA-Public Use
  Company Number: US-BEH-2014041936

PATIENT
  Sex: Male

DRUGS (1)
  1. HIZENTRA [Suspect]

REACTIONS (8)
  - Staphylococcal infection [Unknown]
  - Sinusitis [Unknown]
  - Sinus headache [Unknown]
  - Nasal congestion [Unknown]
  - Infusion site pain [Not Recovered/Not Resolved]
  - Infusion site erythema [Recovered/Resolved]
  - Fatigue [Unknown]
  - Abdominal pain upper [Unknown]
